FAERS Safety Report 20005020 (Version 2)
Quarter: 2022Q1

REPORT INFORMATION
  Report Type: Spontaneous
  Country: US (occurrence: US)
  Receive Date: 20211027
  Receipt Date: 20220203
  Transmission Date: 20220423
  Serious: No
  Sender: FDA-Public Use
  Company Number: US-ALLERGAN-2135914US

PATIENT
  Sex: Female
  Weight: 43.537 kg

DRUGS (2)
  1. BOTOX [Suspect]
     Active Substance: ONABOTULINUMTOXINA
     Indication: Migraine
     Dosage: UNK, SINGLE
     Dates: start: 2020, end: 2020
  2. BOTOX [Suspect]
     Active Substance: ONABOTULINUMTOXINA
     Indication: Skin wrinkling

REACTIONS (12)
  - Skin wrinkling [Recovering/Resolving]
  - Torticollis [Unknown]
  - Collagen disorder [Not Recovered/Not Resolved]
  - Dyskinesia [Unknown]
  - Eating disorder [Unknown]
  - Paralysis [Recovered/Resolved]
  - Crepitations [Recovered/Resolved]
  - Muscle spasticity [Recovered/Resolved]
  - Pain [Unknown]
  - Patient dissatisfaction with treatment [Unknown]
  - Facial paralysis [Unknown]
  - Vision blurred [Recovering/Resolving]

NARRATIVE: CASE EVENT DATE: 20210101
